FAERS Safety Report 22950894 (Version 2)
Quarter: 2023Q4

REPORT INFORMATION
  Report Type: Spontaneous
  Country: JP (occurrence: JP)
  Receive Date: 20230916
  Receipt Date: 20231013
  Transmission Date: 20240110
  Serious: Yes (Hospitalization)
  Sender: FDA-Public Use
  Company Number: JP-TAKEDA-2022TUS053469

PATIENT
  Age: 29 Year
  Sex: Female
  Weight: 38 kg

DRUGS (9)
  1. LIALDA [Suspect]
     Active Substance: MESALAMINE
     Indication: Colitis ulcerative
     Dosage: 4800 MILLIGRAM, QD
     Route: 048
     Dates: start: 20211125, end: 20211217
  2. LIALDA [Suspect]
     Active Substance: MESALAMINE
     Dosage: 4800 MILLIGRAM, QD
     Route: 048
     Dates: end: 20211218
  3. PENTASA [Suspect]
     Active Substance: MESALAMINE
     Indication: Colitis ulcerative
     Dosage: 1 GRAM, QD
     Route: 054
     Dates: start: 20211125, end: 20211218
  4. PENTASA [Suspect]
     Active Substance: MESALAMINE
     Dosage: 1 GRAM, QD
     Route: 054
     Dates: end: 20211217
  5. Cefzon [Concomitant]
     Indication: Colitis ulcerative
     Dosage: 100 MILLIGRAM, Q8HR
     Route: 048
     Dates: start: 20211121, end: 20211204
  6. Cefzon [Concomitant]
     Dosage: 300 MILLIGRAM
     Route: 048
     Dates: end: 20211204
  7. DIETARY SUPPLEMENT\PROBIOTICS [Concomitant]
     Active Substance: DIETARY SUPPLEMENT\PROBIOTICS NOS
     Indication: Colitis ulcerative
     Dosage: 6 DOSAGE FORM, Q8HR
     Route: 048
     Dates: start: 20211125, end: 20230123
  8. DIETARY SUPPLEMENT\PROBIOTICS [Concomitant]
     Active Substance: DIETARY SUPPLEMENT\PROBIOTICS NOS
     Dosage: 18 DOSAGE FORM
     Route: 048
     Dates: end: 20230123
  9. SODIUM CITRATE [Concomitant]
     Active Substance: SODIUM CITRATE
     Indication: Colitis ulcerative
     Dosage: 50 MILLIGRAM, QD
     Route: 048
     Dates: start: 20211125, end: 20220108

REACTIONS (3)
  - Drug intolerance [Recovered/Resolved]
  - Malaise [Recovered/Resolved]
  - Urinary tract infection [Recovered/Resolved]

NARRATIVE: CASE EVENT DATE: 20211212
